FAERS Safety Report 10064095 (Version 1)
Quarter: 2014Q1

REPORT INFORMATION
  Report Type: Spontaneous
  Country: IN (occurrence: None)
  Receive Date: 20140131
  Receipt Date: 20140131
  Transmission Date: 20141002
  Serious: Yes (Life-Threatening)
  Sender: FDA-Public Use
  Company Number: 152520

PATIENT
  Age: 38 Year
  Sex: Female

DRUGS (4)
  1. RANITIDINE [Suspect]
     Indication: PROPHYLAXIS
     Route: 030
  2. RANITIDINE [Suspect]
     Indication: PROCEDURAL NAUSEA
     Route: 030
  3. ONDANSETRON [Suspect]
     Indication: PROPHYLAXIS
     Route: 042
  4. ONDANSETRON [Suspect]
     Indication: PROCEDURAL NAUSEA
     Route: 042

REACTIONS (2)
  - Cardiac arrest [None]
  - Drug interaction [None]
